FAERS Safety Report 8348453-0 (Version None)
Quarter: 2012Q2

REPORT INFORMATION
  Report Type: 
  Country: None (occurrence: None)
  Receive Date: 20120509
  Receipt Date: 20120321
  Transmission Date: 20120825
  Serious: Yes (Other)
  Sender: FDA-Public Use
  Company Number: US-BAYER-2012-028057

PATIENT
  Age: 22 Year
  Sex: Female
  Weight: 94.35 kg

DRUGS (2)
  1. MIRENA [Suspect]
     Indication: CONTRACEPTION
     Dosage: 20 MCG/24HR, CONT
     Route: 015
     Dates: start: 20090101
  2. MIRENA [Suspect]
     Dosage: 20 MCG/24HR, CONT
     Route: 015
     Dates: start: 20110208, end: 20120301

REACTIONS (6)
  - MENORRHAGIA [None]
  - PRURITUS [None]
  - DYSFUNCTIONAL UTERINE BLEEDING [None]
  - BURNING SENSATION [None]
  - VULVOVAGINAL MYCOTIC INFECTION [None]
  - PELVIC PAIN [None]
